FAERS Safety Report 22637913 (Version 1)
Quarter: 2023Q2

REPORT INFORMATION
  Report Type: Spontaneous
  Country: CN (occurrence: CN)
  Receive Date: 20230626
  Receipt Date: 20230626
  Transmission Date: 20230722
  Serious: Yes (Other)
  Sender: FDA-Public Use
  Company Number: CN-002147023-NVSC2023CN140269

PATIENT
  Age: 17 Year
  Sex: Female

DRUGS (7)
  1. TRAMETINIB [Suspect]
     Active Substance: TRAMETINIB
     Indication: Peritoneal gliomatosis
     Dosage: CYCLICALLY FOR 2 COURSES
     Route: 065
     Dates: start: 202106
  2. TRAMETINIB [Suspect]
     Active Substance: TRAMETINIB
     Dosage: 2 MG, QD
     Route: 065
     Dates: start: 20210702
  3. BEVACIZUMAB [Suspect]
     Active Substance: BEVACIZUMAB
     Indication: Peritoneal gliomatosis
     Dosage: 300 ML, Q21D
     Route: 042
     Dates: start: 202106
  4. BEVACIZUMAB [Suspect]
     Active Substance: BEVACIZUMAB
     Dosage: CYCLICALLY FOR 2 COURSES
     Route: 065
     Dates: start: 202106
  5. ENDOSTATIN [Suspect]
     Active Substance: ENDOSTATIN
     Indication: Peritoneal gliomatosis
     Dosage: UNK
     Route: 065
     Dates: start: 20210702
  6. TEMOZOLOMIDE [Suspect]
     Active Substance: TEMOZOLOMIDE
     Indication: Peritoneal gliomatosis
     Dosage: 4 COURSES, 200 MG, QD, D1-D5, Q28D
     Route: 048
  7. TEMOZOLOMIDE [Suspect]
     Active Substance: TEMOZOLOMIDE
     Dosage: 200 MG QD, D1-D7, Q2W
     Route: 048

REACTIONS (3)
  - Peritoneal gliomatosis [Unknown]
  - Malignant neoplasm progression [Unknown]
  - Drug ineffective [Unknown]
